FAERS Safety Report 5649701-8 (Version None)
Quarter: 2008Q1

REPORT INFORMATION
  Report Type: 
  Country: None (occurrence: None)
  Receive Date: 20080304
  Receipt Date: 20080226
  Transmission Date: 20080703
  Serious: Yes (Disabling)
  Sender: FDA-Public Use
  Company Number: US-BOEHRINGER INGELHEIM GMBH, GERMANY-2008-BP-02909BP

PATIENT
  Sex: Male

DRUGS (7)
  1. SPIRIVA [Suspect]
     Indication: CHRONIC OBSTRUCTIVE PULMONARY DISEASE
     Route: 055
     Dates: start: 20080123, end: 20080124
  2. ALLEGRA [Concomitant]
  3. LEVAQUIN [Concomitant]
  4. PREDNISONE TAB [Concomitant]
  5. SYNTHROID [Concomitant]
  6. XANAX [Concomitant]
  7. ALBUTEROL [Concomitant]

REACTIONS (4)
  - BLINDNESS [None]
  - DYSURIA [None]
  - HYPERHIDROSIS [None]
  - RESPIRATORY DISTRESS [None]
